FAERS Safety Report 12232765 (Version 1)
Quarter: 2016Q2

REPORT INFORMATION
  Report Type: Other
  Country: PL (occurrence: PL)
  Receive Date: 20160402
  Receipt Date: 20160402
  Transmission Date: 20160815
  Serious: Yes (Hospitalization)
  Sender: FDA-Public Use
  Company Number: PL-LUPIN PHARMACEUTICALS INC.-2016-00991

PATIENT
  Age: 19 Year
  Sex: Female

DRUGS (1)
  1. DROSPIRENONE + ETHINYLESTRADIOL [Suspect]
     Active Substance: DROSPIRENONE\ETHINYL ESTRADIOL
     Indication: ORAL CONTRACEPTION
     Dosage: 0.02MG/3MG
     Route: 048

REACTIONS (1)
  - Pulmonary embolism [Recovered/Resolved]
